FAERS Safety Report 13179200 (Version 2)
Quarter: 2017Q1

REPORT INFORMATION
  Report Type: Report from Study
  Country: DE (occurrence: DE)
  Receive Date: 20170202
  Receipt Date: 20170302
  Transmission Date: 20170428
  Serious: Yes (Hospitalization)
  Sender: FDA-Public Use
  Company Number: PHHY2016DE180620

PATIENT
  Sex: Male
  Weight: 80 kg

DRUGS (25)
  1. VOTRIENT [Suspect]
     Active Substance: PAZOPANIB HYDROCHLORIDE
     Indication: METASTATIC RENAL CELL CARCINOMA
     Dosage: 800 MG, QD
     Route: 048
     Dates: start: 20160721, end: 20161115
  2. LERCANIDIPINE [Concomitant]
     Active Substance: LERCANIDIPINE
     Indication: HYPERTENSION
     Dosage: 20 MG, QD
     Route: 048
     Dates: start: 20160826
  3. TORASEMID RATIOPHARM [Concomitant]
     Indication: HYPERTENSION
     Dosage: 3.25 MG, BID
     Route: 048
     Dates: start: 20160922
  4. HYDROCORTISON ACIS [Concomitant]
     Indication: ADDISON^S DISEASE
     Dosage: 8 MG, TID
     Route: 048
     Dates: start: 20160922, end: 20161122
  5. FLUDROCORTISONE [Concomitant]
     Active Substance: FLUDROCORTISONE
     Indication: ADDISON^S DISEASE
     Dosage: 0.07 MG, QD
     Route: 048
     Dates: start: 20160922, end: 20161122
  6. HYDROCORTISON [Concomitant]
     Active Substance: HYDROCORTISONE
     Dosage: 5 MG, BID
     Route: 048
     Dates: start: 20170208
  7. HCT-BETA [Concomitant]
     Indication: HYPERTENSION
     Dosage: 12.5 MG, QD
     Route: 048
     Dates: start: 20060102
  8. METOPROLOL RATIOPHARM [Concomitant]
     Indication: HYPERTENSION
     Dosage: 95 MG, BID
     Route: 048
     Dates: start: 20060102
  9. DOXAZOSIN-RATIOPHARM [Concomitant]
     Indication: BENIGN PROSTATIC HYPERPLASIA
     Dosage: 2 MG, QD
     Route: 048
     Dates: start: 20160102
  10. MARCOUMAR [Concomitant]
     Active Substance: PHENPROCOUMON
     Indication: PULMONARY EMBOLISM
     Dosage: 1.5 MG, QD
     Route: 048
     Dates: start: 20160922
  11. TELMISARTAN. [Concomitant]
     Active Substance: TELMISARTAN
     Indication: HYPERTENSION
     Dosage: 80 MG, QD
     Route: 048
     Dates: start: 20060102
  12. L THYROXIN BETA [Concomitant]
     Indication: SECONDARY HYPOTHYROIDISM
     Dosage: 50 UG, QD
     Route: 048
     Dates: start: 20160826, end: 20161021
  13. HYDROCORTISON [Concomitant]
     Active Substance: HYDROCORTISONE
     Dosage: 8.3 MG, TID
     Route: 048
     Dates: start: 20161223, end: 20170207
  14. VOTRIENT [Suspect]
     Active Substance: PAZOPANIB HYDROCHLORIDE
     Dosage: 400 MG, QD
     Route: 048
     Dates: start: 20161116, end: 20161222
  15. PANTOZAL [Concomitant]
     Indication: PRODUCT USED FOR UNKNOWN INDICATION
     Dosage: 20 MG, QD
     Route: 048
     Dates: start: 19960108, end: 20161122
  16. SIMVABETA [Concomitant]
     Active Substance: SIMVASTATIN
     Indication: HYPERTENSION
     Dosage: 10 MG, QD
     Route: 048
     Dates: start: 20060102, end: 20161122
  17. VOTRIENT [Suspect]
     Active Substance: PAZOPANIB HYDROCHLORIDE
     Dosage: 400 MG, QD
     Route: 048
     Dates: start: 20161228, end: 20170118
  18. KALINOR [Concomitant]
     Active Substance: POTASSIUM CITRATE
     Indication: PRODUCT USED FOR UNKNOWN INDICATION
     Dosage: 1.56 G, QD
     Route: 048
     Dates: start: 20160826, end: 20161122
  19. L THYROXIN HENNING [Concomitant]
     Active Substance: LEVOTHYROXINE SODIUM
     Indication: ADRENAL INSUFFICIENCY
     Dosage: 100 UG, QD
     Route: 048
     Dates: start: 20161123
  20. L THYROXIN BETA [Concomitant]
     Dosage: 75 UG, QD
     Route: 048
     Dates: start: 20160922, end: 20161122
  21. HYDROCORTISON [Concomitant]
     Active Substance: HYDROCORTISONE
     Indication: ADDISON^S DISEASE
     Dosage: 6.8 MG, TID
     Route: 048
     Dates: start: 20161123, end: 20161223
  22. XARELTO [Concomitant]
     Active Substance: RIVAROXABAN
     Indication: PULMONARY EMBOLISM
     Dosage: 10 MG, QD
     Route: 048
     Dates: start: 20060102, end: 20160921
  23. FLUDROCORTISONE [Concomitant]
     Active Substance: FLUDROCORTISONE
     Dosage: 0.75 MG, QD
     Route: 048
     Dates: start: 20161123
  24. VOTRIENT [Suspect]
     Active Substance: PAZOPANIB HYDROCHLORIDE
     Dosage: 400 MG, QD
     Route: 048
     Dates: start: 20170121
  25. MOXONIDIN RATIOPHARM [Concomitant]
     Indication: HYPERTENSION
     Dosage: 0.2 MG, QD
     Route: 048
     Dates: start: 20160922

REACTIONS (13)
  - Gastroenteritis [Recovered/Resolved]
  - C-reactive protein increased [Unknown]
  - International normalised ratio increased [Unknown]
  - Monocyte percentage increased [Unknown]
  - Diarrhoea [Recovered/Resolved]
  - Dehydration [Recovered/Resolved]
  - Blood thyroid stimulating hormone increased [Unknown]
  - Platelet count decreased [Unknown]
  - Aspartate aminotransferase increased [Unknown]
  - Blood creatinine increased [Unknown]
  - Blood bilirubin increased [Unknown]
  - Prothrombin time shortened [Unknown]
  - Blood lactate dehydrogenase increased [Unknown]

NARRATIVE: CASE EVENT DATE: 20161223
